FAERS Safety Report 13242479 (Version 3)
Quarter: 2017Q1

REPORT INFORMATION
  Report Type: Spontaneous
  Country: US (occurrence: US)
  Receive Date: 20170216
  Receipt Date: 20170307
  Transmission Date: 20170428
  Serious: Yes (Other)
  Sender: FDA-Public Use
  Company Number: US-SA-2017SA016221

PATIENT
  Age: 60 Year
  Sex: Female
  Weight: 61.23 kg

DRUGS (19)
  1. ARAVA [Suspect]
     Active Substance: LEFLUNOMIDE
     Indication: RHEUMATOID ARTHRITIS
     Route: 065
     Dates: start: 20160501, end: 20160513
  2. ENBREL [Concomitant]
     Active Substance: ETANERCEPT
     Route: 065
  3. PREDNISONE. [Concomitant]
     Active Substance: PREDNISONE
     Indication: RASH
     Dosage: VARIES 1-20 MG
     Route: 065
     Dates: start: 201310
  4. ARAVA [Suspect]
     Active Substance: LEFLUNOMIDE
     Indication: RHEUMATOID ARTHRITIS
     Route: 065
     Dates: start: 20151006, end: 20151113
  5. HYDROXYCHLOROQUINE [Suspect]
     Active Substance: HYDROXYCHLOROQUINE
     Route: 065
  6. PREDNISONE. [Concomitant]
     Active Substance: PREDNISONE
     Indication: RHEUMATOID ARTHRITIS
     Route: 065
  7. PREDNISONE. [Concomitant]
     Active Substance: PREDNISONE
     Indication: RASH
     Route: 065
  8. ADVIL [Concomitant]
     Active Substance: IBUPROFEN
     Indication: MYALGIA
     Dosage: DOSE: 200-800 (UNIT UNSPECIFIED), ONE TABLET ON AND OFF
     Route: 065
  9. XELJANZ [Suspect]
     Active Substance: TOFACITINIB CITRATE
     Route: 048
     Dates: start: 20161114, end: 20161120
  10. PREDNISONE. [Concomitant]
     Active Substance: PREDNISONE
     Indication: RASH GENERALISED
     Route: 065
  11. ADVIL [Concomitant]
     Active Substance: IBUPROFEN
     Indication: RHEUMATOID ARTHRITIS
     Dosage: DOSE: 200-800 (UNIT UNSPECIFIED), ONE TABLET ON AND OFF
     Route: 065
  12. PREDNISONE. [Concomitant]
     Active Substance: PREDNISONE
     Indication: RHEUMATOID ARTHRITIS
     Dosage: VARIES 1-20 MG
     Route: 065
     Dates: start: 201310
  13. PREDNISONE. [Concomitant]
     Active Substance: PREDNISONE
     Indication: RASH ERYTHEMATOUS
     Route: 065
  14. ADVIL [Concomitant]
     Active Substance: IBUPROFEN
     Indication: PAIN
     Dosage: DOSE: 200-800 (UNIT UNSPECIFIED), ONE TABLET ON AND OFF
     Route: 065
  15. ARMOUR THYROID [Concomitant]
     Active Substance: THYROID, PORCINE
     Indication: THYROID DISORDER
     Dosage: 60MG ONCE IN THE MORNING, TAKING PROBABLY 15 YEARS
     Route: 065
  16. HUMIRA [Concomitant]
     Active Substance: ADALIMUMAB
     Route: 065
  17. METHOTREXATE. [Concomitant]
     Active Substance: METHOTREXATE
     Route: 065
  18. PREDNISONE. [Concomitant]
     Active Substance: PREDNISONE
     Indication: RASH GENERALISED
     Dosage: VARIES 1-20 MG
     Route: 065
     Dates: start: 201310
  19. PREDNISONE. [Concomitant]
     Active Substance: PREDNISONE
     Indication: RASH ERYTHEMATOUS
     Dosage: VARIES 1-20 MG
     Route: 065
     Dates: start: 201310

REACTIONS (13)
  - Local swelling [Recovered/Resolved]
  - Pruritus [Recovered/Resolved]
  - Photosensitivity reaction [Recovered/Resolved]
  - Rash erythematous [Recovered/Resolved]
  - Skin exfoliation [Recovered/Resolved]
  - Swelling face [Recovered/Resolved]
  - Rash [Recovered/Resolved]
  - Abdominal distension [Recovered/Resolved]
  - Hypersensitivity [Recovered/Resolved]
  - Lacrimation increased [Recovered/Resolved]
  - Eye pruritus [Recovered/Resolved]
  - Eyelid oedema [Recovered/Resolved]
  - Peripheral swelling [Recovered/Resolved]

NARRATIVE: CASE EVENT DATE: 20151106
